FAERS Safety Report 4935994-9 (Version None)
Quarter: 2006Q1

REPORT INFORMATION
  Report Type: 
  Country: None (occurrence: None)
  Receive Date: 20060307
  Receipt Date: 20050818
  Transmission Date: 20060701
  Serious: Yes (Hospitalization)
  Sender: FDA-Public Use
  Company Number: US-GLAXOSMITHKLINE-A0570930A

PATIENT
  Age: 51 Year
  Sex: Female
  Weight: 95.5 kg

DRUGS (3)
  1. REQUIP [Suspect]
     Indication: RESTLESS LEGS SYNDROME
     Route: 048
     Dates: start: 20050801, end: 20050801
  2. PERCOCET [Suspect]
     Indication: BACK PAIN
     Route: 048
     Dates: start: 20050821, end: 20050821
  3. CYMBALTA [Concomitant]
     Dosage: 60MG PER DAY

REACTIONS (3)
  - CONFUSIONAL STATE [None]
  - DELIRIUM [None]
  - MEMORY IMPAIRMENT [None]
